FAERS Safety Report 4433181-4 (Version None)
Quarter: 2004Q3

REPORT INFORMATION
  Report Type: 
  Country: None (occurrence: None)
  Receive Date: 20040823
  Receipt Date: 20040810
  Transmission Date: 20050211
  Serious: Yes (Hospitalization)
  Sender: FDA-Public Use
  Company Number: 2004054763

PATIENT
  Sex: Male
  Weight: 122.4712 kg

DRUGS (3)
  1. SINEQUAN [Suspect]
     Indication: INSOMNIA
     Dosage: ORAL
     Route: 048
     Dates: start: 19910101
  2. OMEPRAZOLE [Concomitant]
  3. PERCODAN (ACETYLSALICYLIC ACID, CAFFEINE, HOMATROPINE TEREPHTHALATE, O [Concomitant]

REACTIONS (5)
  - DENTAL CARIES [None]
  - INFECTION [None]
  - SURGERY [None]
  - TOOTH FRACTURE [None]
  - VOMITING [None]
